FAERS Safety Report 7057554-9 (Version None)
Quarter: 2010Q4

REPORT INFORMATION
  Report Type: 
  Country: None (occurrence: None)
  Receive Date: 20101022
  Receipt Date: 20101020
  Transmission Date: 20110411
  Serious: Yes (Death, Hospitalization)
  Sender: FDA-Public Use
  Company Number: PHHY2009TW61025

PATIENT
  Sex: Male

DRUGS (1)
  1. EXJADE [Suspect]
     Dosage: 1000 MG, (8 TABLETS)
     Route: 048

REACTIONS (6)
  - DEATH [None]
  - DIZZINESS [None]
  - FALL [None]
  - GINGIVAL BLEEDING [None]
  - PYREXIA [None]
  - VOMITING [None]
